FAERS Safety Report 6969987-7 (Version None)
Quarter: 2010Q3

REPORT INFORMATION
  Report Type: 
  Country: None (occurrence: None)
  Receive Date: 20100903
  Receipt Date: 20100827
  Transmission Date: 20110219
  Serious: Yes (Death, Hospitalization)
  Sender: FDA-Public Use
  Company Number: UTC-001265

PATIENT
  Age: 78 Year
  Sex: Female
  Weight: 62.8 kg

DRUGS (20)
  1. TYVASO [Suspect]
     Indication: PULMONARY HYPERTENSION
     Dosage: (72 MCG, 1 D), INHALATION
     Route: 055
     Dates: start: 20100712
  2. AMLODIPINE (AMLODIPINE) (TABLETS) [Concomitant]
  3. FENOFIBRATE [Concomitant]
  4. LESCOL XL (FLUVASTATIN SODIUM) (TABLETS) [Concomitant]
  5. ADVAIR DISKUS 100/50 [Concomitant]
  6. HAIR VITAMINS (HAIR NUTRITION) [Concomitant]
  7. ASPIRIN [Concomitant]
  8. PLAVIX [Concomitant]
  9. PROAIR (FLUTICASONE PROPIONATE) [Concomitant]
  10. COQ1O (UBIDECARENONE) [Concomitant]
  11. ISOSORBIDE (ISOSORBIDE) (TABLETS) [Concomitant]
  12. LASIX [Concomitant]
  13. COUMADIN [Concomitant]
  14. DIOVAN [Concomitant]
  15. POTASSIUM CHLORIDE [Concomitant]
  16. OXYGEN (OXYGEN) [Concomitant]
  17. IRON (IRON) (TABLETS) [Concomitant]
  18. FISH OIL (FISH OIL) (CAPSULES) [Concomitant]
  19. SPIRIVA [Concomitant]
  20. TRACLEER [Concomitant]

REACTIONS (2)
  - HAEMOPTYSIS [None]
  - INTERNATIONAL NORMALISED RATIO INCREASED [None]
